FAERS Safety Report 4682280-0 (Version None)
Quarter: 2005Q2

REPORT INFORMATION
  Report Type: 
  Country: None (occurrence: None)
  Receive Date: 20050602
  Receipt Date: 20050602
  Transmission Date: 20051028
  Serious: No
  Sender: FDA-Public Use
  Company Number: None

PATIENT
  Sex: Female
  Weight: 69.4003 kg

DRUGS (1)
  1. LEVOTHYROXINE [Suspect]

REACTIONS (1)
  - DRUG LEVEL BELOW THERAPEUTIC [None]
